FAERS Safety Report 13913576 (Version 1)
Quarter: 2017Q3

REPORT INFORMATION
  Report Type: Spontaneous
  Country: US (occurrence: US)
  Receive Date: 20170828
  Receipt Date: 20170828
  Transmission Date: 20171127
  Serious: No
  Sender: FDA-Public Use
  Company Number: US-ROCHE-1137978

PATIENT
  Sex: Male
  Weight: 50.49 kg

DRUGS (2)
  1. NUTROPIN [Suspect]
     Active Substance: SOMATROPIN
     Indication: DWARFISM
     Route: 058
     Dates: start: 19880909
  2. NUTROPIN [Suspect]
     Active Substance: SOMATROPIN
     Indication: GROWTH HORMONE DEFICIENCY

REACTIONS (5)
  - Hypersensitivity [Unknown]
  - Sinus disorder [Unknown]
  - Osteochondrosis [Unknown]
  - Epistaxis [Unknown]
  - Pain [Unknown]
